FAERS Safety Report 7078939-0 (Version None)
Quarter: 2010Q4

REPORT INFORMATION
  Report Type: 
  Country: None (occurrence: None)
  Receive Date: 20101102
  Receipt Date: 20101028
  Transmission Date: 20110411
  Serious: No
  Sender: FDA-Public Use
  Company Number: US-PFIZER INC-2010125747

PATIENT
  Sex: Female
  Weight: 81 kg

DRUGS (12)
  1. TOVIAZ [Suspect]
     Indication: HYPERTONIC BLADDER
     Dosage: 8 MG, 1X/DAY
     Route: 048
     Dates: start: 20100901, end: 20100928
  2. DITROPAN [Suspect]
     Dosage: UNK
  3. TROSPIUM [Suspect]
  4. TOFRANIL [Suspect]
  5. VESICARE [Suspect]
  6. DARIFENACIN [Suspect]
  7. AMLODIPINE BESILATE [Concomitant]
     Indication: HYPERTENSION
     Dosage: 5 MG, 1X/DAY
     Route: 048
  8. ENALAPRIL [Concomitant]
     Indication: HYPERTENSION
     Dosage: UNK, ONE TABLET OF 10 MG IN MORNING AND HALF TABLET OF 10 MG IN NIGHT
     Route: 048
  9. ACETYLSALICYLIC ACID [Concomitant]
     Indication: CARDIOVASCULAR EVENT PROPHYLAXIS
     Dosage: 81 MG, 1X/DAY
     Route: 048
  10. CHONDROITIN/GLUCOSAMINE [Concomitant]
     Dosage: UNK
  11. CALCIUM [Concomitant]
     Dosage: 600 MG, UNK
  12. FISH OIL [Concomitant]
     Dosage: 1200 MG, UNK

REACTIONS (3)
  - DYSPEPSIA [None]
  - GASTROOESOPHAGEAL REFLUX DISEASE [None]
  - NAUSEA [None]
